FAERS Safety Report 9972775 (Version 1)
Quarter: 2014Q1

REPORT INFORMATION
  Report Type: Spontaneous
  Country: US (occurrence: None)
  Receive Date: 20140128
  Receipt Date: 20140128
  Transmission Date: 20141002
  Serious: Yes (Life-Threatening)
  Sender: FDA-Public Use
  Company Number: A-US2013-89911

PATIENT
  Age: 71 Year
  Sex: Female

DRUGS (14)
  1. TRACLEER (BOSENTAN) TABLET [Suspect]
     Indication: PULMONARY ARTERIAL HYPERTENSION
     Route: 048
     Dates: start: 201301, end: 20130312
  2. LINAGLIPTIN (LINAGLIPTIN) [Concomitant]
  3. IRON (IRON) [Concomitant]
  4. AMBIEN (ZOLPIDEM TARTRATE) [Concomitant]
  5. LASIX (FUROSEMIDE) [Concomitant]
  6. QUINAPRIL (QUINAPRIL HYDROCHLORIDE) [Concomitant]
  7. SODIUM BICARBONATE (SODIUM BICARBONATE) [Concomitant]
  8. AMLODIPINE BESILATE (AMLODIPINE BESILATE) [Concomitant]
  9. LEVOTHYROXINE SODIUM (LEVOTHYROXINE SODIUM) [Concomitant]
  10. ALLOPURINOL (ALLOPURINOL) [Concomitant]
  11. GABAPENTIN (GABAPENTIN) [Concomitant]
  12. METOPROLOL TARTRATE (METOPROLOL TARTRATE) [Concomitant]
  13. SIMVASTATIN (SIMVASTATIN) [Concomitant]
  14. PLAVIX (CLOPIDOGREL BISULFATE) (CLOPIDOGREL BISULFATE) [Concomitant]

REACTIONS (9)
  - Hepatic cirrhosis [None]
  - Cholelithiasis [None]
  - Adrenal adenoma [None]
  - Cor pulmonale chronic [None]
  - Pleural effusion [None]
  - Oedema [None]
  - Ascites [None]
  - Fluid retention [None]
  - Hypoxia [None]
